FAERS Safety Report 5399449-2 (Version None)
Quarter: 2007Q3

REPORT INFORMATION
  Report Type: 
  Country: None (occurrence: None)
  Receive Date: 20070727
  Receipt Date: 20070718
  Transmission Date: 20080115
  Serious: Yes (Hospitalization)
  Sender: FDA-Public Use
  Company Number: HQWYE153119JUL07

PATIENT
  Sex: Female
  Weight: 76.8 kg

DRUGS (7)
  1. SIROLIMUS [Suspect]
     Indication: PROPHYLAXIS AGAINST TRANSPLANT REJECTION
     Route: 048
     Dates: start: 20070428
  2. PREDNISONE [Concomitant]
     Dosage: DOSE UNKNOWN
     Route: 065
     Dates: start: 20040303
  3. ASPIRIN [Concomitant]
     Dosage: DOSE UNKNOWN
     Route: 065
     Dates: start: 20041021
  4. TORSEMIDE [Concomitant]
     Dosage: DOSE UNKNOWN
     Route: 065
     Dates: start: 20051219
  5. PRAVASTATIN [Concomitant]
     Dosage: DOSE UNKNOWN
     Route: 065
     Dates: start: 20040810
  6. MYCOPHENOLATE MOFETIL [Concomitant]
     Dosage: DOSE UNKNOWN
     Route: 065
     Dates: start: 20040303
  7. ENALAPRIL MALEATE [Concomitant]
     Dosage: DOSE UNKNOWN
     Route: 065
     Dates: start: 20040407

REACTIONS (2)
  - DRUG INEFFECTIVE [None]
  - HEART TRANSPLANT REJECTION [None]
